FAERS Safety Report 7404497-4 (Version None)
Quarter: 2011Q2

REPORT INFORMATION
  Report Type: 
  Country: None (occurrence: None)
  Receive Date: 20110408
  Receipt Date: 20110405
  Transmission Date: 20111010
  Serious: Yes (Other)
  Sender: FDA-Public Use
  Company Number: US-PFIZER INC-2010151397

PATIENT
  Sex: Female
  Weight: 92.063 kg

DRUGS (6)
  1. SINEQUAN [Concomitant]
     Indication: ANXIETY
     Dosage: UNK
  2. CHANTIX [Suspect]
     Dosage: UNK
     Dates: start: 20100101, end: 20100515
  3. XANAX [Concomitant]
     Indication: ANXIETY
     Dosage: UNK
  4. VYTORIN [Concomitant]
     Indication: BLOOD CHOLESTEROL INCREASED
     Dosage: UNK
  5. CHANTIX [Suspect]
     Indication: SMOKING CESSATION THERAPY
     Dosage: 0.5 MG, 1X/DAY
     Route: 048
     Dates: start: 20100424, end: 20100101
  6. LISINOPRIL [Concomitant]
     Indication: HYPERTENSION
     Dosage: UNK

REACTIONS (10)
  - CARBON DIOXIDE INCREASED [None]
  - HEADACHE [None]
  - GASTROINTESTINAL DISORDER [None]
  - DIARRHOEA [None]
  - DEPRESSION [None]
  - CRYING [None]
  - MENTAL STATUS CHANGES [None]
  - HAEMATURIA [None]
  - NAUSEA [None]
  - DECREASED APPETITE [None]
